FAERS Safety Report 7319536-9 (Version None)
Quarter: 2011Q1

REPORT INFORMATION
  Report Type: 
  Country: None (occurrence: None)
  Receive Date: 20110214
  Receipt Date: 20101130
  Transmission Date: 20110831
  Serious: Yes (Hospitalization, Other)
  Sender: FDA-Public Use
  Company Number: ACO_20448_2010

PATIENT
  Age: 56 Year
  Sex: Male

DRUGS (5)
  1. AVONEX [Concomitant]
  2. AMPYRA [Suspect]
     Indication: PRODUCT USED FOR UNKNOWN INDICATION
     Dosage: 10 MG, Q 12 HRS
     Dates: start: 20101021, end: 20100101
  3. METHADONE /00068902/ (METHADONE HYDROCHLORIDE) [Concomitant]
  4. ARICEPT (DONAPAZIL HYDROCHLORIDE) [Concomitant]
  5. LEXAPRO [Concomitant]

REACTIONS (12)
  - ACCIDENTAL OVERDOSE [None]
  - URINARY TRACT INFECTION [None]
  - BLOOD URINE PRESENT [None]
  - URINE ANALYSIS ABNORMAL [None]
  - NEPHROLITHIASIS [None]
  - MULTIPLE SCLEROSIS [None]
  - CONVULSION [None]
  - MEMORY IMPAIRMENT [None]
  - ALTERED STATE OF CONSCIOUSNESS [None]
  - BLOOD CREATININE ABNORMAL [None]
  - PNEUMONIA [None]
  - CONDITION AGGRAVATED [None]
